FAERS Safety Report 12356470 (Version 2)
Quarter: 2016Q2

REPORT INFORMATION
  Report Type: Spontaneous
  Country: US (occurrence: US)
  Receive Date: 20160511
  Receipt Date: 20160523
  Transmission Date: 20160815
  Serious: No
  Sender: FDA-Public Use
  Company Number: US-JNJFOC-20160502274

PATIENT
  Sex: Male
  Weight: 81.65 kg

DRUGS (4)
  1. DURAGESIC [Suspect]
     Active Substance: FENTANYL
     Indication: ARACHNOIDITIS
     Route: 062
     Dates: start: 20160328
  2. DURAGESIC [Suspect]
     Active Substance: FENTANYL
     Indication: SPINAL OPERATION
     Route: 062
     Dates: start: 20160328
  3. DURAGESIC [Suspect]
     Active Substance: FENTANYL
     Indication: SPINAL OPERATION
     Route: 062
     Dates: start: 2009, end: 20160328
  4. DURAGESIC [Suspect]
     Active Substance: FENTANYL
     Indication: ARACHNOIDITIS
     Route: 062
     Dates: start: 2009, end: 20160328

REACTIONS (10)
  - Drug dose omission [Unknown]
  - Breakthrough pain [Unknown]
  - Hyperhidrosis [Not Recovered/Not Resolved]
  - Blood testosterone decreased [Unknown]
  - Drug effect decreased [Unknown]
  - Product quality issue [Unknown]
  - Drug administration error [Unknown]
  - Incorrect dose administered [Not Recovered/Not Resolved]
  - Abnormal loss of weight [Not Recovered/Not Resolved]
  - Wrong technique in product usage process [Unknown]
